FAERS Safety Report 4411731-1 (Version None)
Quarter: 2004Q3

REPORT INFORMATION
  Report Type: 
  Country: None (occurrence: None)
  Receive Date: 20040728
  Receipt Date: 20040714
  Transmission Date: 20050211
  Serious: No
  Sender: FDA-Public Use
  Company Number: 2004AP03134

PATIENT
  Age: 61 Year
  Sex: Male
  Weight: 63 kg

DRUGS (12)
  1. OMEPRAL [Suspect]
     Indication: REFLUX OESOPHAGITIS
     Dosage: 20 MG DAILY PO
     Route: 048
     Dates: start: 20010718, end: 20030909
  2. ADALAT [Concomitant]
  3. NEO VITACAIN [Concomitant]
  4. SELTOUCH [Concomitant]
  5. VENASMIN [Concomitant]
  6. MUCODYN [Concomitant]
  7. MUCODYN [Concomitant]
  8. CODEINE PHOSPHATE [Concomitant]
  9. TOWARAT [Concomitant]
  10. ZITHROMAX [Concomitant]
  11. PA [Concomitant]
  12. LOXONIN [Concomitant]

REACTIONS (7)
  - ARTHRITIS [None]
  - BLOOD CHOLESTEROL INCREASED [None]
  - HEADACHE [None]
  - NASOPHARYNGITIS [None]
  - PHARYNGEAL MASS [None]
  - PHARYNGITIS [None]
  - SINUSITIS [None]
